FAERS Safety Report 9284437 (Version 1)
Quarter: 2013Q2

REPORT INFORMATION
  Report Type: Report from Study
  Country: CA (occurrence: CA)
  Receive Date: 20130510
  Receipt Date: 20130510
  Transmission Date: 20140414
  Serious: Yes (Hospitalization)
  Sender: FDA-Public Use
  Company Number: CA-ABBOTT-13P-028-1086783-00

PATIENT
  Sex: Female

DRUGS (1)
  1. HUMIRA [Suspect]
     Indication: PSORIATIC ARTHROPATHY
     Route: 058
     Dates: start: 20090629

REACTIONS (8)
  - Wound [Recovered/Resolved]
  - Hypersomnia [Not Recovered/Not Resolved]
  - Back pain [Not Recovered/Not Resolved]
  - Hepatic function abnormal [Not Recovered/Not Resolved]
  - Blister [Recovered/Resolved]
  - Herpes zoster [Recovered/Resolved]
  - Laceration [Recovered/Resolved]
  - Skin erosion [Recovered/Resolved]
